FAERS Safety Report 7202301 (Version 5)
Quarter: 2012Q4

REPORT INFORMATION
  Report Type: 
  Country: JP (occurrence: JP)
  Receive Date: 20091207
  Receipt Date: 20120917
  Transmission Date: 20130627
  Serious: Yes (Hospitalization, Other)
  Sender: FDA-Public Use
  Company Number: JP-NOVOPROD-301408

PATIENT
  Age: 75 Year
  Sex: Male
  Weight: 49 kg

DRUGS (5)
  1. NOVORAPID [Suspect]
     Indication: TYPE 2 DIABETES MELLITUS
     Dosage: UNKNOWN
     Route: 058
     Dates: start: 20091103, end: 20091105
  2. NOVORAPID [Suspect]
     Dosage: UNK
     Route: 058
  3. HUMALOG                            /00030501/ [Concomitant]
     Indication: TYPE 2 DIABETES MELLITUS
  4. INSULIN GLULISINE [Concomitant]
     Indication: TYPE 2 DIABETES MELLITUS
  5. HUMULIN R [Concomitant]
     Indication: TYPE 2 DIABETES MELLITUS
     Route: 042

REACTIONS (4)
  - Anti-insulin antibody [Recovered/Resolved]
  - Drug hypersensitivity [Recovered/Resolved]
  - Diabetes mellitus inadequate control [Recovered/Resolved]
  - Hypoglycaemia [Recovered/Resolved]
